FAERS Safety Report 15111691 (Version 2)
Quarter: 2018Q3

REPORT INFORMATION
  Report Type: Spontaneous
  Country: DE (occurrence: DE)
  Receive Date: 20180705
  Receipt Date: 20180713
  Transmission Date: 20181010
  Serious: Yes (Other)
  Sender: FDA-Public Use
  Company Number: PHHY2018DE036975

PATIENT
  Age: 60 Year
  Sex: Male

DRUGS (1)
  1. VITAMIN D [Suspect]
     Active Substance: CHOLECALCIFEROL
     Indication: NUTRITIONAL SUPPLEMENTATION
     Dosage: 50000 IU, UNK
     Route: 065

REACTIONS (5)
  - Hypercalcaemia [Unknown]
  - Hypercalcaemic nephropathy [Unknown]
  - Acute kidney injury [Unknown]
  - Renal failure [Unknown]
  - Accidental overdose [Unknown]
